FAERS Safety Report 6754023-8 (Version None)
Quarter: 2010Q2

REPORT INFORMATION
  Report Type: 
  Country: None (occurrence: None)
  Receive Date: 20100603
  Receipt Date: 20100524
  Transmission Date: 20101027
  Serious: Yes (Other)
  Sender: FDA-Public Use
  Company Number: B0658481A

PATIENT
  Age: 3 Year
  Sex: Male

DRUGS (1)
  1. CEFUROXIME [Suspect]
     Indication: LUNG INFECTION
     Route: 048

REACTIONS (2)
  - ORBITAL OEDEMA [None]
  - STEVENS-JOHNSON SYNDROME [None]
